FAERS Safety Report 5885253-5 (Version None)
Quarter: 2008Q3

REPORT INFORMATION
  Report Type: 
  Country: None (occurrence: None)
  Receive Date: 20080912
  Receipt Date: 20080829
  Transmission Date: 20090109
  Serious: Yes (Hospitalization)
  Sender: FDA-Public Use
  Company Number: 233992J08USA

PATIENT
  Age: 38 Year
  Sex: Female
  Weight: 63.05 kg

DRUGS (5)
  1. REBIF [Suspect]
     Indication: MULTIPLE SCLEROSIS
     Dosage: 44 MCG, 3 IN 1 WEEKS, SUBCUTANEOUS
     Route: 058
     Dates: start: 20080327
  2. INSULIN(INSULIN 00030501/) [Concomitant]
  3. NOVOLOG INSOLIN (INSULIN ASPPRT) [Concomitant]
  4. BACLOFEN [Concomitant]
  5. INTRAVENOUS STEROID (CORTICOSTEROID NOS) [Concomitant]

REACTIONS (10)
  - COMA [None]
  - CONDITION AGGRAVATED [None]
  - DIABETES MELLITUS INADEQUATE CONTROL [None]
  - DIABETIC KETOACIDOSIS [None]
  - DISEASE RECURRENCE [None]
  - DRUG DOSE OMISSION [None]
  - MULTIPLE SCLEROSIS [None]
  - REFUSAL OF TREATMENT BY PATIENT [None]
  - STAPHYLOCOCCAL INFECTION [None]
  - URINARY INCONTINENCE [None]
